FAERS Safety Report 17569156 (Version 3)
Quarter: 2020Q2

REPORT INFORMATION
  Report Type: Spontaneous
  Country: CN (occurrence: CN)
  Receive Date: 20200322
  Receipt Date: 20200429
  Transmission Date: 20200713
  Serious: Yes (Other)
  Sender: FDA-Public Use
  Company Number: NVSC2020CN077054

PATIENT
  Age: 57 Year
  Sex: Female

DRUGS (3)
  1. BETALOC [Concomitant]
     Active Substance: METOPROLOL TARTRATE
     Indication: PRODUCT USED FOR UNKNOWN INDICATION
     Dosage: UNK UNK, BID (HALF TABLET IN MORNING AND HALF IN EVENING)
     Route: 048
  2. LOTENSIN [Suspect]
     Active Substance: BENAZEPRIL HYDROCHLORIDE
     Indication: HYPERTENSION
     Dosage: 10 MG, BID (1 TABLET IN MORNING AND 1 TABLET IN EVENING)
     Route: 048
     Dates: start: 202003, end: 202003
  3. LOTENSIN [Suspect]
     Active Substance: BENAZEPRIL HYDROCHLORIDE
     Dosage: 10 MG, QD
     Route: 048
     Dates: start: 20200325

REACTIONS (2)
  - Drug ineffective [Unknown]
  - Blood pressure increased [Recovering/Resolving]
